FAERS Safety Report 7564943-2 (Version None)
Quarter: 2011Q2

REPORT INFORMATION
  Report Type: 
  Country: None (occurrence: None)
  Receive Date: 20110622
  Receipt Date: 20110228
  Transmission Date: 20111010
  Serious: Yes (Death)
  Sender: FDA-Public Use
  Company Number: US-MYLANLABS-2011S1004067

PATIENT
  Age: 77 Year
  Sex: Female

DRUGS (3)
  1. CLOZAPINE [Suspect]
     Route: 048
     Dates: end: 20110201
  2. CLOZAPINE [Suspect]
     Route: 048
     Dates: end: 20110201
  3. CLOZAPINE [Suspect]
     Route: 048
     Dates: end: 20110201

REACTIONS (1)
  - DEATH [None]
